FAERS Safety Report 16456144 (Version 3)
Quarter: 2025Q4

REPORT INFORMATION
  Report Type: Spontaneous
  Country: US (occurrence: US)
  Receive Date: 20190620
  Receipt Date: 20251201
  Transmission Date: 20260117
  Serious: No
  Sender: BIOGEN
  Company Number: US-BIOGEN-2017BI00496017

PATIENT
  Age: 15 Year
  Sex: Male

DRUGS (3)
  1. TYSABRI [Suspect]
     Active Substance: NATALIZUMAB
     Indication: Multiple sclerosis
     Dosage: DOSAGE TEXT:INFUSED OVER 1 HOUR
     Dates: start: 20170105
  2. TYSABRI [Suspect]
     Active Substance: NATALIZUMAB
  3. TYSABRI [Suspect]
     Active Substance: NATALIZUMAB
     Dates: start: 2025

REACTIONS (4)
  - Inappropriate schedule of product administration [Not Recovered/Not Resolved]
  - Off label use [Recovered/Resolved]
  - Dyslexia [Unknown]
  - Prescribed underdose [Not Recovered/Not Resolved]

NARRATIVE: CASE EVENT DATE: 20170105
